FAERS Safety Report 18120408 (Version 31)
Quarter: 2022Q2

REPORT INFORMATION
  Report Type: Spontaneous
  Country: GB (occurrence: GB)
  Receive Date: 20200806
  Receipt Date: 20220622
  Transmission Date: 20220721
  Serious: Yes (Hospitalization, Other)
  Sender: FDA-Public Use
  Company Number: GB-MYLANLABS-2018M1088760

PATIENT
  Age: 27 Year
  Sex: Male

DRUGS (61)
  1. CLOZARIL [Suspect]
     Active Substance: CLOZAPINE
     Indication: Schizophrenia
     Dosage: UNK
     Route: 048
     Dates: start: 20181115
  2. CLOZARIL [Suspect]
     Active Substance: CLOZAPINE
     Dosage: UNK, QD
     Route: 048
     Dates: start: 20181212, end: 20181231
  3. CLOZARIL [Suspect]
     Active Substance: CLOZAPINE
     Dosage: UNK, QD
     Route: 048
     Dates: start: 20191120, end: 20191202
  4. CLOZARIL [Suspect]
     Active Substance: CLOZAPINE
     Dosage: 1 DOSAGE FORM, QD
     Route: 048
     Dates: start: 20181212, end: 20181231
  5. CLOZARIL [Suspect]
     Active Substance: CLOZAPINE
     Dosage: 1 DOSAGE FORM, QD
     Route: 048
     Dates: start: 20191120, end: 20191202
  6. CLOZARIL [Suspect]
     Active Substance: CLOZAPINE
     Dosage: UNK
     Route: 065
     Dates: start: 20191202
  7. CLOZARIL [Suspect]
     Active Substance: CLOZAPINE
     Dosage: UNK
     Route: 065
     Dates: start: 20181231
  8. CLOZARIL [Suspect]
     Active Substance: CLOZAPINE
     Dosage: UNK
     Route: 048
     Dates: start: 20181115
  9. CLOZARIL [Suspect]
     Active Substance: CLOZAPINE
     Dosage: UNK
     Route: 065
     Dates: start: 201811
  10. CLOZARIL [Suspect]
     Active Substance: CLOZAPINE
     Dosage: UNK
     Route: 065
     Dates: start: 20181130
  11. CLOZARIL [Suspect]
     Active Substance: CLOZAPINE
     Dosage: 1 DOSAGE FORM, QD
     Route: 048
     Dates: start: 20181231
  12. CLOZARIL [Suspect]
     Active Substance: CLOZAPINE
     Dosage: UNK
     Route: 065
     Dates: start: 20211231
  13. OLANZAPINE [Suspect]
     Active Substance: OLANZAPINE
     Indication: Product used for unknown indication
     Dosage: UNK
     Route: 065
  14. OLANZAPINE [Suspect]
     Active Substance: OLANZAPINE
     Dosage: UNK
     Route: 065
  15. OLANZAPINE [Suspect]
     Active Substance: OLANZAPINE
     Dosage: UNK
     Route: 065
     Dates: start: 201801
  16. OLANZAPINE [Suspect]
     Active Substance: OLANZAPINE
     Dosage: UNK
     Route: 065
     Dates: start: 201811
  17. OLANZAPINE [Suspect]
     Active Substance: OLANZAPINE
     Dosage: UNK
     Route: 065
     Dates: start: 20181130
  18. LI LIQUID [Concomitant]
     Indication: Product used for unknown indication
     Dosage: UNK, PM
     Route: 005
  19. LI LIQUID [Concomitant]
     Dosage: 1 DOSAGE FORM, QD (PM)
     Route: 005
  20. LI LIQUID [Concomitant]
     Dosage: 15 MILLILITER, QD (15ML (600 MG) NOCTE)
     Route: 005
  21. LI LIQUID [Concomitant]
     Dosage: 15 MILLILITER, QD (15ML (600 MG) DAILY)
     Route: 005
  22. LI LIQUID [Concomitant]
     Dosage: UNK, PM
     Route: 005
  23. LI LIQUID [Concomitant]
     Dosage: 1 DOSAGE FORM, QD (PM)
     Route: 005
  24. LI LIQUID [Concomitant]
     Dosage: 15 MILLILITER, QD (600 MG)
     Route: 005
  25. LI LIQUID [Concomitant]
     Dosage: UNK, QD (PM)
     Route: 005
  26. CLONAZEPAM [Concomitant]
     Active Substance: CLONAZEPAM
     Indication: Product used for unknown indication
     Dosage: 2.5 MILLILITER, QD
     Route: 048
  27. CLONAZEPAM [Concomitant]
     Active Substance: CLONAZEPAM
     Dosage: 2.5 MILLILITER, Q4D
     Route: 048
  28. CLONAZEPAM [Concomitant]
     Active Substance: CLONAZEPAM
     Dosage: 2.5 MILLILITER, QD
     Route: 048
  29. CLONAZEPAM [Concomitant]
     Active Substance: CLONAZEPAM
     Dosage: 2.5 MILLILITER, QID
     Route: 065
  30. CLONAZEPAM [Concomitant]
     Active Substance: CLONAZEPAM
     Dosage: 10 MILLILITER, QID
     Route: 065
  31. CLONAZEPAM [Concomitant]
     Active Substance: CLONAZEPAM
     Dosage: 40 MILLILITER, QD
     Route: 065
  32. CLONAZEPAM [Concomitant]
     Active Substance: CLONAZEPAM
     Dosage: 10 MILLILITER, QID
     Route: 065
  33. CLONAZEPAM [Concomitant]
     Active Substance: CLONAZEPAM
     Dosage: UNK
     Route: 065
  34. VALPROATE SODIUM [Concomitant]
     Active Substance: VALPROATE SODIUM
     Indication: Product used for unknown indication
     Dosage: 18.75 MILLIMOLE, AM
     Route: 065
  35. VALPROATE SODIUM [Concomitant]
     Active Substance: VALPROATE SODIUM
     Dosage: 25 MILLIMOLE, PM
     Route: 065
  36. VALPROATE SODIUM [Concomitant]
     Active Substance: VALPROATE SODIUM
     Dosage: 18.75 MILLILITER, QD
     Route: 065
  37. VALPROATE SODIUM [Concomitant]
     Active Substance: VALPROATE SODIUM
     Dosage: 25 MILLIMOLE, QD
     Route: 065
  38. VALPROATE SODIUM [Concomitant]
     Active Substance: VALPROATE SODIUM
     Dosage: UNK, PM
     Route: 065
  39. VALPROATE SODIUM [Concomitant]
     Active Substance: VALPROATE SODIUM
     Dosage: UNK, AM
     Route: 065
  40. VALPROATE SODIUM [Concomitant]
     Active Substance: VALPROATE SODIUM
     Dosage: UNK, QD
     Route: 065
  41. VALPROATE SODIUM [Concomitant]
     Active Substance: VALPROATE SODIUM
     Dosage: 18.75 MILLILITER
     Route: 065
  42. VALPROATE SODIUM [Concomitant]
     Active Substance: VALPROATE SODIUM
     Dosage: 25 MILLIMOLE, QD (PM)
     Route: 065
  43. VALPROATE SODIUM [Concomitant]
     Active Substance: VALPROATE SODIUM
     Dosage: 18.75 MILLIMOLE, QD
     Route: 065
  44. VALPROATE SODIUM [Concomitant]
     Active Substance: VALPROATE SODIUM
     Dosage: 18.75 MILLILITER, QD
     Route: 065
  45. VALPROATE SODIUM [Concomitant]
     Active Substance: VALPROATE SODIUM
     Dosage: 25 MILLIMOLE, QD
     Route: 065
  46. QUETIAPINE [Concomitant]
     Active Substance: QUETIAPINE
     Indication: Product used for unknown indication
     Dosage: 10 MILLILITER, AM
     Route: 065
  47. QUETIAPINE [Concomitant]
     Active Substance: QUETIAPINE
     Dosage: 20 MILLIMOLE, PM
     Route: 065
  48. QUETIAPINE [Concomitant]
     Active Substance: QUETIAPINE
     Dosage: 20 MILLILITER, QD
     Route: 065
  49. QUETIAPINE [Concomitant]
     Active Substance: QUETIAPINE
     Dosage: 10 MILLILITER, QD
     Route: 065
  50. QUETIAPINE [Concomitant]
     Active Substance: QUETIAPINE
     Dosage: UNK
     Route: 065
  51. QUETIAPINE [Concomitant]
     Active Substance: QUETIAPINE
     Dosage: 10 MILLILITER, QD (10 ML, AM)
     Route: 065
  52. QUETIAPINE [Concomitant]
     Active Substance: QUETIAPINE
     Dosage: 20 MILLIMOLE, QD
     Route: 065
  53. LITHIUM CITRATE [Concomitant]
     Active Substance: LITHIUM CITRATE
     Indication: Product used for unknown indication
     Dosage: 1 DOSAGE FORM, QD (1 DF, QD (PM)
     Route: 005
  54. LITHIUM CITRATE [Concomitant]
     Active Substance: LITHIUM CITRATE
     Dosage: 15ML (600 MG) NOCTE, QD15 MILLILITER, QD
     Route: 005
  55. LITHIUM CITRATE [Concomitant]
     Active Substance: LITHIUM CITRATE
     Dosage: 15 MILLILITER, QD (15 ML (600MG), DAILY)
     Route: 005
  56. LITHIUM CITRATE [Concomitant]
     Active Substance: LITHIUM CITRATE
     Dosage: 1 DOSAGE FORM, QD
     Route: 005
  57. LITHIUM CITRATE [Concomitant]
     Active Substance: LITHIUM CITRATE
     Dosage: 1 DOSAGE FORM, QD (PM)
     Route: 005
  58. LITHIUM CITRATE [Concomitant]
     Active Substance: LITHIUM CITRATE
     Dosage: 1 DOSAGE FORM, QD (PM)
     Route: 005
  59. LITHIUM CITRATE [Concomitant]
     Active Substance: LITHIUM CITRATE
     Dosage: UNK
     Route: 065
  60. LITHIUM CITRATE [Concomitant]
     Active Substance: LITHIUM CITRATE
     Dosage: 15 MILLILITER, QD (600MG)
     Route: 065
  61. LITHIUM CITRATE [Concomitant]
     Active Substance: LITHIUM CITRATE
     Dosage: UNK
     Route: 005

REACTIONS (10)
  - Malaise [Unknown]
  - Neutropenia [Recovered/Resolved]
  - White blood cell count decreased [Recovered/Resolved]
  - Eosinophilia [Recovered/Resolved]
  - Neutrophil count increased [Recovered/Resolved]
  - White blood cell count increased [Recovered/Resolved]
  - Aggression [Unknown]
  - Abnormal behaviour [Unknown]
  - Drug ineffective [Unknown]
  - Off label use [Unknown]

NARRATIVE: CASE EVENT DATE: 20181101
